FAERS Safety Report 21615221 (Version 2)
Quarter: 2022Q4

REPORT INFORMATION
  Report Type: Report from Study
  Country: US (occurrence: US)
  Receive Date: 20221118
  Receipt Date: 20221220
  Transmission Date: 20230113
  Serious: Yes (Hospitalization)
  Sender: FDA-Public Use
  Company Number: US-002147023-NVSC2022US255594

PATIENT
  Age: 58 Year
  Sex: Male

DRUGS (3)
  1. ENTRESTO [Suspect]
     Active Substance: SACUBITRIL\VALSARTAN
     Indication: Cardiac failure
     Dosage: 1 DOSAGE FORM, BID (24/26 MG)
     Route: 048
     Dates: start: 202211
  2. ENTRESTO [Suspect]
     Active Substance: SACUBITRIL\VALSARTAN
     Dosage: 0.5 DOSAGE FORM, BID (49/51 MG)
     Route: 048
     Dates: start: 20221208
  3. UNSPECIFIED INGREDIENT [Concomitant]
     Active Substance: UNSPECIFIED INGREDIENT
     Indication: Product used for unknown indication
     Dosage: UNK
     Route: 065

REACTIONS (16)
  - Cough [Recovering/Resolving]
  - Pulse abnormal [Recovering/Resolving]
  - Hypervolaemia [Unknown]
  - Weight decreased [Recovering/Resolving]
  - Pollakiuria [Recovering/Resolving]
  - Peripheral swelling [Recovered/Resolved]
  - Muscular weakness [Unknown]
  - Sleep disorder [Unknown]
  - Hypersomnia [Unknown]
  - Somnolence [Unknown]
  - Nasopharyngitis [Unknown]
  - Hypertension [Unknown]
  - Gait inability [Recovering/Resolving]
  - Dizziness [Unknown]
  - Dizziness postural [Unknown]
  - Inappropriate schedule of product administration [Unknown]

NARRATIVE: CASE EVENT DATE: 20221101
